FAERS Safety Report 12125659 (Version 2)
Quarter: 2016Q2

REPORT INFORMATION
  Report Type: Spontaneous
  Country: US (occurrence: US)
  Receive Date: 20160229
  Receipt Date: 20160509
  Transmission Date: 20160815
  Serious: Yes (Life-Threatening)
  Sender: FDA-Public Use
  Company Number: US-BAYER-2016-033526

PATIENT
  Age: 4 Year
  Sex: Male
  Weight: 15.42 kg

DRUGS (1)
  1. MIRALAX [Suspect]
     Active Substance: POLYETHYLENE GLYCOL 3350
     Dosage: 2 DF, QD
     Route: 048
     Dates: start: 20160103

REACTIONS (3)
  - Drug administered to patient of inappropriate age [None]
  - Retching [Recovered/Resolved]
  - Product use issue [None]

NARRATIVE: CASE EVENT DATE: 20160103
